FAERS Safety Report 26093572 (Version 1)
Quarter: 2025Q4

REPORT INFORMATION
  Report Type: Spontaneous
  Country: US (occurrence: US)
  Receive Date: 20251126
  Receipt Date: 20251126
  Transmission Date: 20260118
  Serious: No
  Sender: LUNDBECK
  Company Number: US-LUNDBECK-DKLU4021617

PATIENT
  Age: 39 Year
  Sex: Female
  Weight: 102 kg

DRUGS (20)
  1. VYEPTI [Suspect]
     Active Substance: EPTINEZUMAB-JJMR
     Indication: Migraine
     Dosage: 100 MILLIGRAM
     Route: 041
     Dates: start: 20250505
  2. ALPRAZOLAM [Concomitant]
     Active Substance: ALPRAZOLAM
     Indication: Product used for unknown indication
     Dosage: 0.5 MILLIGRAM
  3. FERRIC POLYSACCHARIDE COMPLEX [Concomitant]
     Active Substance: FERRIC POLYSACCHARIDE COMPLEX
     Indication: Product used for unknown indication
  4. FIORICET [Concomitant]
     Active Substance: ACETAMINOPHEN\BUTALBITAL\CAFFEINE
     Indication: Product used for unknown indication
  5. VITAMIN C [Concomitant]
     Active Substance: ASCORBIC ACID
     Indication: Product used for unknown indication
  6. AMBIEN [Concomitant]
     Active Substance: ZOLPIDEM TARTRATE
     Indication: Product used for unknown indication
     Dosage: 10 MILLIGRAM
  7. ARIPIPRAZOLE [Concomitant]
     Active Substance: ARIPIPRAZOLE
     Indication: Product used for unknown indication
     Dosage: 15 MILLIGRAM
  8. DULOXETINE [Concomitant]
     Active Substance: DULOXETINE
     Indication: Product used for unknown indication
     Dosage: 20 MILLIGRAM
  9. EMGALITY [Concomitant]
     Active Substance: GALCANEZUMAB-GNLM
     Indication: Product used for unknown indication
     Dosage: 120 MILLIGRAM
     Route: 058
  10. KETOROLAC [Concomitant]
     Active Substance: KETOROLAC TROMETHAMINE
     Indication: Product used for unknown indication
     Dosage: 10 MILLIGRAM
  11. NURTEC ODT [Concomitant]
     Active Substance: RIMEGEPANT SULFATE
     Indication: Product used for unknown indication
     Dosage: 75 MILLIGRAM
  12. PANTOPRAZOLE [Concomitant]
     Active Substance: PANTOPRAZOLE
     Indication: Product used for unknown indication
     Dosage: 40 MILLIGRAM
  13. FLUTICASONE PROPIONATE [Concomitant]
     Active Substance: FLUTICASONE PROPIONATE
     Indication: Product used for unknown indication
     Dosage: 90 MICROGRAM
  14. PROMETHAZINE [Concomitant]
     Active Substance: PROMETHAZINE HYDROCHLORIDE
     Indication: Product used for unknown indication
     Dosage: 25 MILLIGRAM
  15. PROPRANOLOL [Concomitant]
     Active Substance: PROPRANOLOL HYDROCHLORIDE
     Indication: Product used for unknown indication
     Dosage: 120 MILLIGRAM
  16. SYMBICORT [Concomitant]
     Active Substance: BUDESONIDE\FORMOTEROL FUMARATE DIHYDRATE
     Indication: Product used for unknown indication
     Dosage: 160MCG-4.5 MCG
  17. UBRELVY [Concomitant]
     Active Substance: UBROGEPANT
     Indication: Product used for unknown indication
     Dosage: 100 MILLIGRAM
  18. VITAMIN C [Concomitant]
     Active Substance: ASCORBIC ACID
     Indication: Product used for unknown indication
  19. VITAMIN D3 [Concomitant]
     Active Substance: CHOLECALCIFEROL
     Indication: Product used for unknown indication
  20. ZOFRAN [Concomitant]
     Active Substance: ONDANSETRON HYDROCHLORIDE
     Indication: Product used for unknown indication

REACTIONS (1)
  - Fibromyalgia [Recovering/Resolving]

NARRATIVE: CASE EVENT DATE: 20250604
